FAERS Safety Report 10209846 (Version 2)
Quarter: 2014Q2

REPORT INFORMATION
  Report Type: Spontaneous
  Country: JP (occurrence: JP)
  Receive Date: 20140602
  Receipt Date: 20140613
  Transmission Date: 20141212
  Serious: Yes (Hospitalization, Other)
  Sender: FDA-Public Use
  Company Number: PHHY2014JP066847

PATIENT
  Age: 80 Year
  Sex: Male

DRUGS (2)
  1. ZOMETA [Suspect]
     Indication: PROSTATE CANCER METASTATIC
     Dosage: 4 MG, MONTHLY
     Route: 041
     Dates: start: 200912, end: 201104
  2. ZOMETA [Suspect]
     Indication: METASTASES TO BONE

REACTIONS (12)
  - Osteomyelitis [Recovering/Resolving]
  - Jaw fracture [Recovered/Resolved]
  - Osteonecrosis of jaw [Recovered/Resolved]
  - Inflammation [Unknown]
  - Purulent discharge [Unknown]
  - Malocclusion [Unknown]
  - Bone loss [Unknown]
  - Primary sequestrum [Unknown]
  - Erythema [Unknown]
  - Swelling [Unknown]
  - Gingivitis [Unknown]
  - Soft tissue infection [Unknown]
